FAERS Safety Report 21290176 (Version 1)
Quarter: 2022Q3

REPORT INFORMATION
  Report Type: Report from Study
  Country: GB (occurrence: GB)
  Receive Date: 20220902
  Receipt Date: 20220902
  Transmission Date: 20221027
  Serious: Yes (Other)
  Sender: FDA-Public Use
  Company Number: GB-BRISTOL-MYERS SQUIBB COMPANY-2022-027964

PATIENT
  Age: 73 Year
  Sex: Male
  Weight: 85 kg

DRUGS (9)
  1. AMITRIPTYLINE [Concomitant]
     Active Substance: AMITRIPTYLINE
     Indication: Arthralgia
     Dosage: 10 MG
     Route: 048
     Dates: start: 2003
  2. RAMIPRIL [Concomitant]
     Active Substance: RAMIPRIL
     Indication: Coronary artery bypass
     Dosage: 10 MG
     Route: 048
     Dates: start: 2004
  3. CYCLIZINE [Concomitant]
     Active Substance: CYCLIZINE
     Indication: Nausea
     Dosage: 50 MG?FREQUENCY : PRN
     Route: 048
     Dates: start: 20210518
  4. LOPERAMIDE [Concomitant]
     Active Substance: LOPERAMIDE
     Indication: Diarrhoea
     Dosage: 2 MG?FREQUENCY : PRN
     Route: 048
     Dates: start: 20210518
  5. ASPIRIN [Concomitant]
     Active Substance: ASPIRIN
     Indication: Acute myocardial infarction
     Dosage: 75 MG
     Route: 048
     Dates: start: 2004
  6. ATORVASTATIN [Concomitant]
     Active Substance: ATORVASTATIN
     Indication: Acute myocardial infarction
     Dosage: 40 MG
     Route: 048
     Dates: start: 2004
  7. ESOMEPRAZOLE [Concomitant]
     Active Substance: ESOMEPRAZOLE
     Indication: Gastrooesophageal reflux disease
     Dosage: 20 MG
     Route: 048
     Dates: start: 2020
  8. IBUPROFEN [Concomitant]
     Active Substance: IBUPROFEN
     Indication: Bone pain
     Dosage: 1 DOSAGE FORM = 200-400 MG?FREQUENCY : PRN
     Route: 048
     Dates: start: 20210711
  9. ACETAMINOPHEN [Concomitant]
     Active Substance: ACETAMINOPHEN
     Indication: Bone pain
     Dosage: 1000 MG?FREQUENCY : PRN
     Route: 048
     Dates: start: 20210711

REACTIONS (1)
  - Uveitis [Recovered/Resolved]

NARRATIVE: CASE EVENT DATE: 20220403
